FAERS Safety Report 23395107 (Version 2)
Quarter: 2024Q1

REPORT INFORMATION
  Report Type: Spontaneous
  Country: US (occurrence: US)
  Receive Date: 20240112
  Receipt Date: 20240307
  Transmission Date: 20240409
  Serious: No
  Sender: FDA-Public Use
  Company Number: US-APOTEX-2023AP016729

PATIENT

DRUGS (1)
  1. REGADENOSON [Suspect]
     Active Substance: REGADENOSON
     Indication: Product used for unknown indication
     Dosage: UNK
     Route: 065

REACTIONS (2)
  - Heart rate increased [Unknown]
  - Drug ineffective [Unknown]
